FAERS Safety Report 5702743-6 (Version None)
Quarter: 2008Q2

REPORT INFORMATION
  Report Type: 
  Country: None (occurrence: None)
  Receive Date: 20080411
  Receipt Date: 20080402
  Transmission Date: 20081010
  Serious: Yes (Other)
  Sender: FDA-Public Use
  Company Number: B0512052A

PATIENT
  Age: 60 Year
  Sex: Female
  Weight: 103 kg

DRUGS (6)
  1. SERETIDE DISKUS [Suspect]
     Indication: ASTHMA
     Dosage: 1PUFF TWICE PER DAY
     Route: 055
     Dates: start: 20070801, end: 20070801
  2. PIASCLEDINE [Concomitant]
     Dosage: 300MG PER DAY
     Route: 048
  3. PARIET [Concomitant]
     Dosage: 20MG PER DAY
     Route: 048
  4. ALLOPURINOL [Concomitant]
     Dosage: 100MG PER DAY
     Route: 048
  5. CLARITIN [Concomitant]
     Dosage: 10MG PER DAY
     Route: 048
  6. ALTEIS [Concomitant]
     Dosage: 20MG PER DAY
     Route: 048

REACTIONS (7)
  - ABDOMINAL PAIN LOWER [None]
  - ADRENAL INSUFFICIENCY [None]
  - ADRENOCORTICAL INSUFFICIENCY ACUTE [None]
  - ANGIOEDEMA [None]
  - ERYTHEMA [None]
  - FATIGUE [None]
  - URTICARIA [None]
